FAERS Safety Report 5281758-9 (Version None)
Quarter: 2007Q1

REPORT INFORMATION
  Report Type: 
  Country: None (occurrence: None)
  Receive Date: 20070330
  Receipt Date: 20070322
  Transmission Date: 20070707
  Serious: Yes (Hospitalization)
  Sender: FDA-Public Use
  Company Number: FR-GLAXOSMITHKLINE-B0463077A

PATIENT
  Age: 78 Year
  Sex: Female

DRUGS (5)
  1. LAMICTAL [Suspect]
     Dosage: 25MG TWICE PER DAY
     Route: 048
     Dates: start: 20070101, end: 20070211
  2. TAHOR [Concomitant]
     Dosage: 1UNIT PER DAY
     Route: 065
  3. LOZOL [Concomitant]
     Dosage: 1UNIT PER DAY
     Route: 065
  4. DIFFU K [Concomitant]
     Dosage: 2CAP PER DAY
     Route: 048
  5. KARDEGIC [Concomitant]
     Dosage: 160MG PER DAY
     Route: 048

REACTIONS (9)
  - CHEILITIS [None]
  - CONJUNCTIVITIS [None]
  - EOSINOPHILIA [None]
  - HYPERTHERMIA [None]
  - INFLAMMATION [None]
  - PURPURA [None]
  - RASH MACULO-PAPULAR [None]
  - RASH PUSTULAR [None]
  - TOXIC SKIN ERUPTION [None]
